FAERS Safety Report 5505734-3 (Version None)
Quarter: 2007Q4

REPORT INFORMATION
  Report Type: 
  Country: None (occurrence: None)
  Receive Date: 20071102
  Receipt Date: 20071024
  Transmission Date: 20080405
  Serious: Yes (Other)
  Sender: FDA-Public Use
  Company Number: JP-PFIZER INC-2007087517

PATIENT
  Age: 58 Year
  Sex: Female

DRUGS (4)
  1. ZYVOX [Suspect]
     Indication: STAPHYLOCOCCAL INFECTION
     Dosage: DAILY DOSE:1200MG
     Route: 042
  2. PASIL [Concomitant]
  3. INOVAN [Concomitant]
  4. CERCINE [Concomitant]

REACTIONS (1)
  - BLOOD PRESSURE DECREASED [None]
